FAERS Safety Report 8355282-0 (Version None)
Quarter: 2012Q2

REPORT INFORMATION
  Report Type: 
  Country: None (occurrence: None)
  Receive Date: 20120511
  Receipt Date: 20110523
  Transmission Date: 20120825
  Serious: No
  Sender: FDA-Public Use
  Company Number: US-TEVA-2011002562

PATIENT
  Sex: Female
  Weight: 76.726 kg

DRUGS (9)
  1. TRICOR [Concomitant]
     Dates: start: 20030101
  2. NUVIGIL [Suspect]
     Indication: SLEEP APNOEA SYNDROME
     Dosage: 150 MILLIGRAM;
     Route: 048
     Dates: start: 20110520, end: 20110520
  3. HYDROCHLOROTHIAZIDE [Concomitant]
  4. SYNTHROID [Concomitant]
     Dates: start: 19660101
  5. METFORMIN HCL [Concomitant]
     Dates: start: 20060101
  6. SINGULAIR [Concomitant]
     Dates: start: 20060101
  7. ADVAIR DISKUS 100/50 [Concomitant]
     Dates: start: 20060101
  8. LUVOX [Concomitant]
     Dates: start: 19890101
  9. ZETIA [Concomitant]
     Dates: start: 20080101

REACTIONS (1)
  - INSOMNIA [None]
